FAERS Safety Report 12987076 (Version 12)
Quarter: 2017Q4

REPORT INFORMATION
  Report Type: Report from Study
  Country: US (occurrence: US)
  Receive Date: 20161130
  Receipt Date: 20171123
  Transmission Date: 20180320
  Serious: Yes (Other)
  Sender: FDA-Public Use
  Company Number: US-JNJFOC-20161112476

PATIENT
  Age: 81 Year
  Sex: Male

DRUGS (9)
  1. IMBRUVICA [Suspect]
     Active Substance: IBRUTINIB
     Indication: CHRONIC LYMPHOCYTIC LEUKAEMIA
     Route: 048
     Dates: start: 20161029
  2. ACYCLOVIR. [Concomitant]
     Active Substance: ACYCLOVIR
  3. SIMVASTATIN. [Concomitant]
     Active Substance: SIMVASTATIN
  4. ZOFRAN [Concomitant]
     Active Substance: ONDANSETRON HYDROCHLORIDE
  5. LASIX [Concomitant]
     Active Substance: FUROSEMIDE
  6. IMBRUVICA [Suspect]
     Active Substance: IBRUTINIB
     Indication: CHRONIC LYMPHOCYTIC LEUKAEMIA
     Route: 048
     Dates: start: 20170124
  7. TIMOLOL. [Concomitant]
     Active Substance: TIMOLOL
  8. LISINOPRIL. [Concomitant]
     Active Substance: LISINOPRIL
  9. XARELTO [Concomitant]
     Active Substance: RIVAROXABAN

REACTIONS (29)
  - Herpes zoster oticus [Unknown]
  - Oropharyngeal discomfort [Not Recovered/Not Resolved]
  - Oral herpes [Unknown]
  - Stomatitis [Unknown]
  - Facial paralysis [Unknown]
  - Laryngitis [Not Recovered/Not Resolved]
  - Sinusitis [Unknown]
  - Swelling [Recovering/Resolving]
  - Dizziness [Unknown]
  - Haemoptysis [Unknown]
  - Haematochezia [Unknown]
  - Contusion [Not Recovered/Not Resolved]
  - Blood pressure increased [Not Recovered/Not Resolved]
  - Oedema peripheral [Not Recovered/Not Resolved]
  - Weight increased [Unknown]
  - Balance disorder [Unknown]
  - Sinus headache [Unknown]
  - Onychoclasis [Unknown]
  - Exercise tolerance decreased [Unknown]
  - Oropharyngeal pain [Not Recovered/Not Resolved]
  - Diarrhoea [Not Recovered/Not Resolved]
  - Thrombosis [Unknown]
  - Deafness [Unknown]
  - Micturition frequency decreased [Unknown]
  - Rash [Unknown]
  - Sputum discoloured [Unknown]
  - Rhinorrhoea [Unknown]
  - Viral upper respiratory tract infection [Unknown]
  - Increased tendency to bruise [Unknown]

NARRATIVE: CASE EVENT DATE: 2016
